FAERS Safety Report 10867824 (Version 1)
Quarter: 2015Q1

REPORT INFORMATION
  Report Type: Spontaneous
  Country: US (occurrence: US)
  Receive Date: 20150225
  Receipt Date: 20150225
  Transmission Date: 20150721
  Serious: No
  Sender: FDA-Public Use
  Company Number: US-MYLANLABS-2014S1007987

PATIENT
  Sex: Male

DRUGS (1)
  1. ALPRAZOLAM TABLETS, USP [Suspect]
     Active Substance: ALPRAZOLAM
     Dosage: 8 MG,ONCE
     Route: 048

REACTIONS (2)
  - Amnesia [Not Recovered/Not Resolved]
  - Unevaluable event [Not Recovered/Not Resolved]
